FAERS Safety Report 4922078-9 (Version None)
Quarter: 2006Q1

REPORT INFORMATION
  Report Type: 
  Country: None (occurrence: None)
  Receive Date: 20060224
  Receipt Date: 20060217
  Transmission Date: 20060701
  Serious: Yes (Hospitalization)
  Sender: FDA-Public Use
  Company Number: US-AMGEN-US169415

PATIENT
  Sex: Male

DRUGS (13)
  1. ARANESP [Suspect]
     Indication: RENAL FAILURE CHRONIC
  2. PREDNISONE [Concomitant]
  3. AMLODIPINE [Concomitant]
  4. CELLCEPT [Concomitant]
  5. LASIX [Concomitant]
  6. METOPROLOL [Concomitant]
  7. MINOXIDIL [Concomitant]
  8. CLONIDINE [Concomitant]
  9. PHOSLO [Concomitant]
  10. ROCALTROL [Concomitant]
  11. SODIUM BICARBONATE [Concomitant]
  12. INSULIN [Concomitant]
  13. PREVACID [Concomitant]

REACTIONS (4)
  - ANAEMIA [None]
  - BLOOD CREATININE INCREASED [None]
  - HYPERPARATHYROIDISM [None]
  - RETICULOCYTE COUNT DECREASED [None]
